FAERS Safety Report 14162408 (Version 1)
Quarter: 2017Q4

REPORT INFORMATION
  Report Type: Spontaneous
  Country: US (occurrence: US)
  Receive Date: 20171106
  Receipt Date: 20171106
  Transmission Date: 20180321
  Serious: Yes (Death)
  Sender: FDA-Public Use
  Company Number: US-PFIZER INC-2017474336

PATIENT
  Age: 51 Year
  Sex: Male

DRUGS (1)
  1. SUTENT [Suspect]
     Active Substance: SUNITINIB MALATE
     Indication: MALIGNANT NEOPLASM PROGRESSION
     Dosage: 50 MG, CYCLIC (1 CAPSULE BY MOUTH DAILY FOR 14 DAYS, THEN 7 DAY BREAK)
     Route: 048
     Dates: start: 201404

REACTIONS (1)
  - Death [Fatal]
